FAERS Safety Report 14488313 (Version 1)
Quarter: 2018Q1

REPORT INFORMATION
  Report Type: Spontaneous
  Country: US (occurrence: US)
  Receive Date: 20180203
  Receipt Date: 20180203
  Transmission Date: 20180509
  Serious: Yes (Hospitalization)
  Sender: FDA-Public Use
  Company Number: None

PATIENT
  Age: 11 Year
  Sex: Male

DRUGS (5)
  1. CREON [Suspect]
     Active Substance: PANCRELIPASE AMYLASE\PANCRELIPASE LIPASE\PANCRELIPASE PROTEASE
     Indication: CYSTIC FIBROSIS
     Route: 048
  2. VENTOLIN HFA [Suspect]
     Active Substance: ALBUTEROL SULFATE
     Indication: CYSTIC FIBROSIS
     Dosage: DOSE -2 PUFFS?FREQUENCY - BID - QID
     Route: 048
  3. QVAR [Suspect]
     Active Substance: BECLOMETHASONE DIPROPIONATE
     Indication: CYSTIC FIBROSIS
     Dosage: DOSE - 2 PUFFS
     Route: 048
  4. RANITIDINE. [Suspect]
     Active Substance: RANITIDINE
     Indication: CYSTIC FIBROSIS
     Route: 048
  5. PULMOZYME [Suspect]
     Active Substance: DORNASE ALFA
     Indication: CYSTIC FIBROSIS
     Dosage: DOSE - 1 VIAL?ROUTE - VIA NEBULIZER

REACTIONS (1)
  - Hospitalisation [None]

NARRATIVE: CASE EVENT DATE: 20180127
